FAERS Safety Report 19234696 (Version 2)
Quarter: 2021Q2

REPORT INFORMATION
  Report Type: Spontaneous
  Country: NP (occurrence: NP)
  Receive Date: 20210508
  Receipt Date: 20210601
  Transmission Date: 20210717
  Serious: No
  Sender: FDA-Public Use
  Company Number: NP-LUPIN PHARMACEUTICALS INC.-2021-06534

PATIENT
  Age: 33 Year
  Sex: Female

DRUGS (2)
  1. MISOPROSTOL TABLET [Suspect]
     Active Substance: MISOPROSTOL
     Indication: PROPHYLAXIS
     Dosage: 800 MICROGRAM
     Route: 065
  2. TRANEXAMIC ACID. [Suspect]
     Active Substance: TRANEXAMIC ACID
     Indication: PROPHYLAXIS
     Dosage: 1 GRAM
     Route: 065

REACTIONS (1)
  - Maternal exposure during delivery [Unknown]
